FAERS Safety Report 8415240-4 (Version None)
Quarter: 2012Q2

REPORT INFORMATION
  Report Type: 
  Country: None (occurrence: None)
  Receive Date: 20120530
  Receipt Date: 20120522
  Transmission Date: 20120825
  Serious: Yes (Other)
  Sender: FDA-Public Use
  Company Number: US-DEXPHARM-20120606

PATIENT
  Sex: Male
  Weight: 77.1 kg

DRUGS (5)
  1. LEVOTHYROXINE SODIUM [Concomitant]
  2. GEMFIBROZIL [Concomitant]
  3. OMEPRAZOLE [Suspect]
     Indication: GASTROOESOPHAGEAL REFLUX DISEASE
     Dosage: 20 MG ONCE A DAY, ORAL
     Route: 048
     Dates: start: 20120504, end: 20120520
  4. DIGOXIN [Suspect]
     Dosage: 1.25 MG
  5. LISINOPRIL [Concomitant]

REACTIONS (4)
  - DRUG INTERACTION [None]
  - BRADYCARDIA [None]
  - HEART RATE INCREASED [None]
  - TOXICITY TO VARIOUS AGENTS [None]
